FAERS Safety Report 5307772-2 (Version None)
Quarter: 2007Q2

REPORT INFORMATION
  Report Type: 
  Country: None (occurrence: None)
  Receive Date: 20070418
  Receipt Date: 20070403
  Transmission Date: 20071010
  Serious: Yes (Hospitalization)
  Sender: FDA-Public Use
  Company Number: MEDI-0005699

PATIENT
  Age: 7 Month
  Sex: Male

DRUGS (3)
  1. SYNAGIS [Suspect]
     Dates: start: 20070105, end: 20070302
  2. SYNAGIS [Suspect]
     Dates: start: 20070105
  3. SYNAGIS [Suspect]
     Dates: start: 20070202

REACTIONS (1)
  - PNEUMONIA [None]
